FAERS Safety Report 24592157 (Version 1)
Quarter: 2024Q4

REPORT INFORMATION
  Report Type: Report from Study
  Country: JP (occurrence: JP)
  Receive Date: 20241108
  Receipt Date: 20241108
  Transmission Date: 20250115
  Serious: Yes (Other)
  Sender: ROCHE
  Company Number: JP-ROCHE-10000126197

PATIENT

DRUGS (2)
  1. ATEZOLIZUMAB [Suspect]
     Active Substance: ATEZOLIZUMAB
     Indication: Hepatocellular carcinoma
     Route: 042
  2. BEVACIZUMAB [Suspect]
     Active Substance: BEVACIZUMAB
     Indication: Hepatocellular carcinoma
     Route: 065

REACTIONS (16)
  - Proteinuria [Unknown]
  - Hypertension [Unknown]
  - Liver injury [Unknown]
  - Hypothyroidism [Unknown]
  - Rash [Unknown]
  - Renal impairment [Unknown]
  - Epistaxis [Unknown]
  - Cerebral haemorrhage [Unknown]
  - Colitis [Unknown]
  - Pyrexia [Unknown]
  - Decreased appetite [Unknown]
  - Nausea [Unknown]
  - Fatigue [Unknown]
  - Diarrhoea [Unknown]
  - Ascites [Unknown]
  - Infusion related reaction [Unknown]
